FAERS Safety Report 7553105-0 (Version None)
Quarter: 2011Q2

REPORT INFORMATION
  Report Type: 
  Country: None (occurrence: None)
  Receive Date: 20110616
  Receipt Date: 20091122
  Transmission Date: 20111010
  Serious: Yes (Death, Hospitalization, Other)
  Sender: FDA-Public Use
  Company Number: US-BAYER-200939865NA

PATIENT
  Age: 56 Year
  Sex: Male
  Weight: 95 kg

DRUGS (11)
  1. DOPAMINE HCL [Concomitant]
     Dosage: UNK
     Route: 042
     Dates: start: 20030922
  2. WELLBUTRIN [Concomitant]
  3. ANCEF [Concomitant]
     Dosage: 1 G, UNK
     Route: 042
     Dates: start: 20030922
  4. TRASYLOL [Suspect]
     Indication: CORONARY ARTERY BYPASS
     Dosage: ILLEGIBLE LOADING DOSE, FOLLOWED BY 25CC/HOUR
     Route: 042
     Dates: start: 20030922, end: 20030922
  5. VANCOMYCIN [Concomitant]
     Dosage: 1 GRAM X 2
     Route: 042
     Dates: start: 20030922
  6. LIDOCAINE [Concomitant]
     Dosage: UNK
     Route: 042
     Dates: start: 20030922
  7. LITHIUM CARBONATE [Concomitant]
     Indication: SCHIZOPHRENIA
     Route: 048
  8. AMIODARONE HCL [Concomitant]
     Dosage: UNK
     Route: 042
     Dates: start: 20030922
  9. HEPARIN [Concomitant]
     Dosage: 30,000 UNITS
     Route: 042
     Dates: start: 20030922
  10. DOBUTREX [Concomitant]
     Dosage: 10MG/KG/MIN
     Route: 042
     Dates: start: 20030922
  11. MILRINONE [Concomitant]
     Dosage: UNK
     Route: 042
     Dates: start: 20030922

REACTIONS (13)
  - RENAL FAILURE [None]
  - EMOTIONAL DISTRESS [None]
  - UNEVALUABLE EVENT [None]
  - RENAL INJURY [None]
  - PAIN [None]
  - DEATH [None]
  - STRESS [None]
  - ANHEDONIA [None]
  - INJURY [None]
  - RENAL IMPAIRMENT [None]
  - FEAR [None]
  - ANXIETY [None]
  - MULTI-ORGAN FAILURE [None]
